FAERS Safety Report 9181813 (Version 2)
Quarter: 2013Q2

REPORT INFORMATION
  Report Type: Spontaneous
  Country: JP (occurrence: JP)
  Receive Date: 20130322
  Receipt Date: 20130409
  Transmission Date: 20140414
  Serious: Yes (Other)
  Sender: FDA-Public Use
  Company Number: JP-009507513-1303JPN009257

PATIENT
  Age: 69 Year
  Sex: Female
  Weight: 53 kg

DRUGS (11)
  1. PEGINTRON [Suspect]
     Indication: CHRONIC HEPATITIS C
     Dosage: 1.5UG/KG/WEEK
     Route: 058
     Dates: start: 20121001, end: 20121023
  2. PEGINTRON [Suspect]
     Dosage: 1.0 UG/KG/WEEK
     Route: 058
     Dates: start: 20121024, end: 20121211
  3. PEGINTRON [Suspect]
     Dosage: 0.75 UG/KG/WEEK
     Route: 058
     Dates: start: 20121212, end: 20130122
  4. PEGINTRON [Suspect]
     Dosage: 0.5 UG/KG/WEEK
     Route: 058
     Dates: start: 20130123, end: 20130306
  5. REBETOL [Suspect]
     Indication: CHRONIC HEPATITIS C
     Dosage: 400 MG, QD
     Route: 048
     Dates: start: 20121001, end: 20121023
  6. REBETOL [Suspect]
     Dosage: 200 MG, QD
     Route: 048
     Dates: start: 20121024, end: 20130306
  7. TELAVIC [Suspect]
     Indication: CHRONIC HEPATITIS C
     Dosage: 1500 MG, QD
     Route: 048
     Dates: start: 20121001, end: 20121023
  8. TELAVIC [Suspect]
     Dosage: 750 MG, QD
     Route: 048
     Dates: start: 20121024, end: 20121112
  9. TELAVIC [Suspect]
     Dosage: 2250 MG, QD
     Route: 048
     Dates: start: 20121113, end: 20121219
  10. TELAVIC [Suspect]
     Dosage: 750 MG, QD
     Route: 048
     Dates: start: 20121226, end: 20130219
  11. PARIET [Concomitant]
     Indication: PROPHYLAXIS
     Dosage: 1 DF, QD
     Route: 048
     Dates: start: 20121010, end: 20130308

REACTIONS (2)
  - Jaundice [Recovering/Resolving]
  - Aspartate aminotransferase increased [Recovering/Resolving]
